FAERS Safety Report 11687841 (Version 2)
Quarter: 2015Q4

REPORT INFORMATION
  Report Type: Spontaneous
  Country: US (occurrence: US)
  Receive Date: 20151030
  Receipt Date: 20151104
  Transmission Date: 20160304
  Serious: Yes (Other)
  Sender: FDA-Public Use
  Company Number: US-GLAXOSMITHKLINE-US2015151556

PATIENT
  Sex: Male

DRUGS (6)
  1. AVAPRO [Concomitant]
     Active Substance: IRBESARTAN
  2. LITHIUM. [Concomitant]
     Active Substance: LITHIUM
  3. LAMICTAL [Suspect]
     Active Substance: LAMOTRIGINE
     Indication: DEPRESSION
     Dosage: 150 MG, BID (50 MG IN THE MORNING, 100 MG IN THE EVENING)
     Route: 048
     Dates: start: 20150507, end: 20151023
  4. LOW DOSE ASPIRIN [Concomitant]
     Active Substance: ASPIRIN
  5. LAMICTAL [Suspect]
     Active Substance: LAMOTRIGINE
     Dosage: 100 MG, BID
     Dates: start: 20150606
  6. DILTIAZEM [Concomitant]
     Active Substance: DILTIAZEM

REACTIONS (3)
  - Stevens-Johnson syndrome [Unknown]
  - Scarlet fever [Unknown]
  - Rash [Not Recovered/Not Resolved]
